FAERS Safety Report 17884696 (Version 2)
Quarter: 2023Q4

REPORT INFORMATION
  Report Type: Spontaneous
  Country: US (occurrence: US)
  Receive Date: 20200611
  Receipt Date: 20231004
  Transmission Date: 20240110
  Serious: Yes (Other)
  Sender: FDA-Public Use
  Company Number: US-SUNOVION-2020SUN001718

PATIENT

DRUGS (1)
  1. APTIOM [Suspect]
     Active Substance: ESLICARBAZEPINE ACETATE
     Indication: Epilepsy
     Dosage: 1200 MG, QD
     Route: 048

REACTIONS (4)
  - Seizure [Unknown]
  - Road traffic accident [Unknown]
  - Fear [Not Recovered/Not Resolved]
  - Cerebral disorder [Not Recovered/Not Resolved]
